FAERS Safety Report 5008934-4 (Version None)
Quarter: 2006Q2

REPORT INFORMATION
  Report Type: 
  Country: None (occurrence: None)
  Receive Date: 20060518
  Receipt Date: 20060510
  Transmission Date: 20061013
  Serious: Yes (Hospitalization)
  Sender: FDA-Public Use
  Company Number: 20060099

PATIENT
  Age: 45 Year
  Sex: Female

DRUGS (2)
  1. VENOFER [Suspect]
     Indication: ALOPECIA
     Dosage: 50 MG INTRAVENOUS DRIP
     Route: 041
     Dates: start: 20060123, end: 20060123
  2. VENOFER [Suspect]
     Indication: IRON DEFICIENCY ANAEMIA
     Dosage: 50 MG INTRAVENOUS DRIP
     Route: 041
     Dates: start: 20060123, end: 20060123

REACTIONS (4)
  - DYSPNOEA [None]
  - OEDEMA PERIPHERAL [None]
  - PARAESTHESIA [None]
  - POLYURIA [None]
